FAERS Safety Report 17034193 (Version 1)
Quarter: 2019Q4

REPORT INFORMATION
  Report Type: Spontaneous
  Country: JP (occurrence: JP)
  Receive Date: 20191114
  Receipt Date: 20191114
  Transmission Date: 20200122
  Serious: Yes (Other)
  Sender: FDA-Public Use
  Company Number: JP-BAXTER-2019BAX023201

PATIENT
  Age: 40 Year
  Sex: Male

DRUGS (3)
  1. EMTRICITABINE W/TENOFOVIR DISOPROXIL FUMARATE [Concomitant]
     Active Substance: EMTRICITABINE\TENOFOVIR DISOPROXIL
     Indication: KAPOSI^S SARCOMA AIDS RELATED
     Route: 065
  2. DOXIL [Suspect]
     Active Substance: DOXORUBICIN HYDROCHLORIDE
     Indication: KAPOSI^S SARCOMA AIDS RELATED
     Dosage: TAKEN 49 COURSES OF PEGYLATED LIPOSOMAL DOXORUBICIN, WITH A TOTAL CUMULATIVE DOSE OF 980 MG/M2
     Route: 065
  3. RALTEGRAVIR. [Concomitant]
     Active Substance: RALTEGRAVIR
     Indication: KAPOSI^S SARCOMA AIDS RELATED
     Route: 065

REACTIONS (1)
  - Arthritis bacterial [Unknown]
